FAERS Safety Report 6433174-1 (Version None)
Quarter: 2009Q4

REPORT INFORMATION
  Report Type: 
  Country: None (occurrence: None)
  Receive Date: 20091109
  Receipt Date: 20091027
  Transmission Date: 20100525
  Serious: Yes (Other)
  Sender: FDA-Public Use
  Company Number: PHHY2009BR42531

PATIENT
  Sex: Male
  Weight: 75 kg

DRUGS (5)
  1. DIOVAN [Suspect]
     Indication: HYPERTENSION
     Dosage: 80 MG, UNK
     Dates: start: 20081101, end: 20090101
  2. DIOVAN [Suspect]
     Dosage: 160 MG 1 TABLET/DAY
  3. DIOVAN [Suspect]
     Dosage: 320 MG/DAY
  4. METFORMIN HCL [Concomitant]
     Indication: DIABETES MELLITUS
     Dosage: 500 MG, AT NIGHT
     Route: 048
  5. GLIMEPIRIDE [Concomitant]
     Indication: DIABETES MELLITUS
     Dosage: 1 MGT A DAY WHEN WAS NECESSARY
     Route: 048

REACTIONS (17)
  - ANXIETY [None]
  - BLOOD PRESSURE FLUCTUATION [None]
  - DEPRESSED MOOD [None]
  - DRUG INEFFECTIVE [None]
  - EYE DISORDER [None]
  - FALL [None]
  - FEELING ABNORMAL [None]
  - HEAD INJURY [None]
  - HEADACHE [None]
  - HYPERTENSION [None]
  - IMPATIENCE [None]
  - INFLAMMATION [None]
  - INSOMNIA [None]
  - MALAISE [None]
  - NERVOUSNESS [None]
  - POISONING [None]
  - SKIN PLAQUE [None]
